FAERS Safety Report 10234320 (Version 2)
Quarter: 2014Q3

REPORT INFORMATION
  Report Type: Spontaneous
  Country: US (occurrence: US)
  Receive Date: 20140612
  Receipt Date: 20140825
  Transmission Date: 20150326
  Serious: Yes (Hospitalization, Other)
  Sender: FDA-Public Use
  Company Number: US-GILEAD-2014-0105176

PATIENT
  Age: 47 Year
  Sex: Male

DRUGS (6)
  1. LETAIRIS [Suspect]
     Active Substance: AMBRISENTAN
     Indication: PULMONARY ARTERIAL HYPERTENSION
     Dosage: 10 MG, QD
     Route: 065
     Dates: start: 20120219
  2. DIGOXIN. [Suspect]
     Active Substance: DIGOXIN
  3. SPIRONOLACTONE. [Concomitant]
     Active Substance: SPIRONOLACTONE
  4. TYVASO [Concomitant]
     Active Substance: TREPROSTINIL
  5. TORSEMIDE. [Concomitant]
     Active Substance: TORSEMIDE
  6. METOLAZONE. [Concomitant]
     Active Substance: METOLAZONE

REACTIONS (5)
  - Alcohol poisoning [Unknown]
  - Hypotension [Not Recovered/Not Resolved]
  - Dyspnoea exertional [Unknown]
  - Toxicity to various agents [Recovered/Resolved]
  - Fluid retention [Recovering/Resolving]

NARRATIVE: CASE EVENT DATE: 201405
